FAERS Safety Report 10225336 (Version 2)
Quarter: 2014Q2

REPORT INFORMATION
  Report Type: Report from Study
  Country: JP (occurrence: JP)
  Receive Date: 20140609
  Receipt Date: 20140630
  Transmission Date: 20141212
  Serious: Yes (Other)
  Sender: FDA-Public Use
  Company Number: JP-JNJFOC-20140602939

PATIENT
  Age: 69 Year
  Sex: Male
  Weight: 101 kg

DRUGS (11)
  1. RIVAROXABAN [Suspect]
     Indication: ATRIAL FIBRILLATION
     Route: 048
     Dates: start: 20131009, end: 20140204
  2. RIVAROXABAN [Suspect]
     Indication: THROMBOSIS PROPHYLAXIS
     Route: 048
     Dates: start: 20131009, end: 20140204
  3. RIVAROXABAN [Suspect]
     Indication: CEREBROVASCULAR ACCIDENT PROPHYLAXIS
     Route: 048
     Dates: start: 20131009, end: 20140204
  4. METFORMIN HYDROCHLORIDE [Concomitant]
     Route: 048
     Dates: end: 20140204
  5. SELARA (EPLERENONE) [Concomitant]
     Route: 048
  6. MAINTATE [Concomitant]
     Route: 048
  7. ALLOPURINOL [Concomitant]
     Route: 048
  8. MIGLITOL [Concomitant]
     Route: 048
  9. DIART [Concomitant]
     Route: 048
     Dates: end: 20140204
  10. MICARDIS [Concomitant]
     Route: 048
  11. NORVASC [Concomitant]
     Route: 048

REACTIONS (2)
  - Pulmonary haemorrhage [Recovered/Resolved]
  - Lung neoplasm malignant [Recovered/Resolved]
